FAERS Safety Report 8093638-4 (Version None)
Quarter: 2012Q1

REPORT INFORMATION
  Report Type: 
  Country: None (occurrence: None)
  Receive Date: 20120131
  Receipt Date: 20120116
  Transmission Date: 20120608
  Serious: Yes (Death)
  Sender: FDA-Public Use
  Company Number: JP-INCYTE CORPORATION-2012IN000084

PATIENT

DRUGS (2)
  1. INC424 [Suspect]
     Indication: MYELOFIBROSIS
     Dosage: 15 MG, BID
     Route: 048
     Dates: start: 20111031, end: 20111127
  2. INC424 [Suspect]
     Dosage: 5 MG, BID
     Route: 048
     Dates: start: 20111212, end: 20120109

REACTIONS (7)
  - SEPSIS [None]
  - GASTROENTERITIS BACTERIAL [None]
  - ANAEMIA [None]
  - SPLENOMEGALY [None]
  - VOMITING [None]
  - ABDOMINAL PAIN LOWER [None]
  - NAUSEA [None]
